FAERS Safety Report 8889253 (Version 1)
Quarter: 2012Q4

REPORT INFORMATION
  Report Type: Report from Study
  Country: CL (occurrence: CL)
  Receive Date: 20121106
  Receipt Date: 20121106
  Transmission Date: 20130627
  Serious: Yes (Hospitalization)
  Sender: FDA-Public Use
  Company Number: CL-ROCHE-1152646

PATIENT
  Sex: Female
  Weight: 54 kg

DRUGS (3)
  1. CAPECITABINE [Suspect]
     Indication: PANCREATIC CARCINOMA
     Route: 048
     Dates: end: 20100512
  2. OMEPRAZOLE [Concomitant]
  3. ZOLPIDEM [Concomitant]

REACTIONS (2)
  - Liver injury [Not Recovered/Not Resolved]
  - Renal injury [Not Recovered/Not Resolved]
